FAERS Safety Report 21644685 (Version 1)
Quarter: 2022Q4

REPORT INFORMATION
  Report Type: Spontaneous
  Country: GR (occurrence: GR)
  Receive Date: 20221125
  Receipt Date: 20221125
  Transmission Date: 20230113
  Serious: Yes (Death, Hospitalization, Other)
  Sender: FDA-Public Use
  Company Number: GR-ABBVIE-4213010

PATIENT
  Age: 82 Year
  Sex: Male

DRUGS (8)
  1. VENETOCLAX [Suspect]
     Active Substance: VENETOCLAX
     Indication: Acute myeloid leukaemia
     Route: 048
  2. VENETOCLAX [Suspect]
     Active Substance: VENETOCLAX
     Indication: Acute myeloid leukaemia
     Route: 048
  3. VENETOCLAX [Suspect]
     Active Substance: VENETOCLAX
     Indication: Acute myeloid leukaemia
     Route: 048
  4. VENETOCLAX [Suspect]
     Active Substance: VENETOCLAX
     Indication: Acute myeloid leukaemia
     Route: 048
  5. ONDANSETRON [Concomitant]
     Active Substance: ONDANSETRON
     Indication: Product used for unknown indication
     Route: 048
  6. AZACITIDINE [Concomitant]
     Active Substance: AZACITIDINE
     Indication: Acute myeloid leukaemia
  7. ALLOPURINOL [Concomitant]
     Active Substance: ALLOPURINOL
     Indication: Product used for unknown indication
     Route: 048
  8. LEVOFLOXACIN [Concomitant]
     Active Substance: LEVOFLOXACIN
     Indication: Product used for unknown indication
     Route: 048

REACTIONS (29)
  - Death [Fatal]
  - Hepatic steatosis [Unknown]
  - Tachypnoea [Unknown]
  - Pleural effusion [Unknown]
  - Pericardial effusion [Unknown]
  - Nodule [Unknown]
  - Cardiac tamponade [Unknown]
  - Atelectasis [Unknown]
  - Mouth injury [Unknown]
  - Unevaluable event [Unknown]
  - Crepitations [Unknown]
  - Rheumatoid arthritis [Unknown]
  - Klebsiella infection [Unknown]
  - Atrial fibrillation [Unknown]
  - Dysphonia [Unknown]
  - Lung disorder [Unknown]
  - Blood pressure diastolic [Unknown]
  - Pyrexia [Unknown]
  - Bronchiectasis [Unknown]
  - Pyrexia [Recovered/Resolved]
  - Hypoventilation [Unknown]
  - Lower gastrointestinal haemorrhage [Unknown]
  - Staphylococcal infection [Unknown]
  - Platelet count decreased [Unknown]
  - Acinetobacter infection [Unknown]
  - Laboratory test abnormal [Unknown]
  - Crepitations [Unknown]
  - Pyrexia [Recovered/Resolved]
  - Klebsiella infection [Unknown]

NARRATIVE: CASE EVENT DATE: 20220401
